FAERS Safety Report 5492142-7 (Version None)
Quarter: 2007Q4

REPORT INFORMATION
  Report Type: 
  Country: None (occurrence: None)
  Receive Date: 20071015
  Receipt Date: 20070914
  Transmission Date: 20080405
  Serious: No
  Sender: FDA-Public Use
  Company Number: 2007SP003229

PATIENT
  Age: 48 Year
  Sex: Female

DRUGS (3)
  1. LUNESTA [Suspect]
     Indication: INSOMNIA
     Dosage: 2 MG;ORAL  : 3 MG;ORAL : 2 MG;PRN;ORAL
     Route: 048
  2. LEXAPRO [Concomitant]
  3. ATENOLOL [Concomitant]

REACTIONS (2)
  - SLEEP TALKING [None]
  - SOMNAMBULISM [None]
